FAERS Safety Report 7580731-5 (Version None)
Quarter: 2011Q2

REPORT INFORMATION
  Report Type: 
  Country: None (occurrence: None)
  Receive Date: 20110629
  Receipt Date: 20110620
  Transmission Date: 20111010
  Serious: Yes (Death, Other)
  Sender: FDA-Public Use
  Company Number: JP-JNJFOC-20110610485

PATIENT
  Sex: Male

DRUGS (11)
  1. FERROUS CITRATE [Concomitant]
     Route: 048
     Dates: start: 20081101
  2. TOPIRAMATE [Suspect]
     Route: 048
     Dates: start: 20100428, end: 20100513
  3. SEROQUEL [Suspect]
     Indication: MENTAL DISABILITY
     Route: 048
     Dates: start: 20100125
  4. CARBAMAZEPINE [Concomitant]
     Indication: EPILEPSY
     Route: 048
     Dates: start: 20080401
  5. CLONAZEPAM [Concomitant]
     Indication: EPILEPSY
     Route: 048
     Dates: start: 20080509
  6. LONASEN [Concomitant]
     Route: 048
     Dates: start: 20080928
  7. TOPIRAMATE [Suspect]
     Route: 048
     Dates: start: 20100514, end: 20100529
  8. ZYPREXA [Suspect]
     Indication: MENTAL DISABILITY
     Route: 048
     Dates: start: 20090329
  9. RISPERDAL [Concomitant]
     Route: 030
     Dates: start: 20100323
  10. TOPIRAMATE [Suspect]
     Indication: EPILEPSY
     Route: 048
     Dates: start: 20100418, end: 20100422
  11. TOPIRAMATE [Suspect]
     Route: 048
     Dates: start: 20100423, end: 20100427

REACTIONS (5)
  - ALTERED STATE OF CONSCIOUSNESS [None]
  - HYPOGLYCAEMIA [None]
  - SHOCK [None]
  - LIVER DISORDER [None]
  - PNEUMONIA [None]
